FAERS Safety Report 7102734-7 (Version None)
Quarter: 2010Q4

REPORT INFORMATION
  Report Type: 
  Country: None (occurrence: None)
  Receive Date: 20101109
  Receipt Date: 20101026
  Transmission Date: 20110411
  Serious: Yes (Death, Other)
  Sender: FDA-Public Use
  Company Number: 2010AP002283

PATIENT
  Age: 36 Year
  Sex: Male

DRUGS (1)
  1. METFORMIN HCL [Suspect]
     Dosage: 500 MG;BID

REACTIONS (7)
  - DIALYSIS [None]
  - HEPATORENAL SYNDROME [None]
  - LACTIC ACIDOSIS [None]
  - MALAISE [None]
  - MULTI-ORGAN FAILURE [None]
  - NO THERAPEUTIC RESPONSE [None]
  - PARTIAL SEIZURES [None]
